FAERS Safety Report 20855574 (Version 1)
Quarter: 2022Q2

REPORT INFORMATION
  Report Type: Report from Study
  Country: US (occurrence: US)
  Receive Date: 20220520
  Receipt Date: 20220520
  Transmission Date: 20220721
  Serious: Yes (Hospitalization, Other)
  Sender: FDA-Public Use
  Company Number: US-BAYER-2022A031697

PATIENT
  Age: 65 Year
  Sex: Male
  Weight: 94.785 kg

DRUGS (4)
  1. ADEMPAS [Suspect]
     Active Substance: RIOCIGUAT
     Indication: Pulmonary arterial hypertension
     Dosage: UNK
     Dates: start: 20201002
  2. ADEMPAS [Suspect]
     Active Substance: RIOCIGUAT
     Indication: Pulmonary arterial hypertension
     Dosage: 1 MG, TID
     Route: 048
  3. ADEMPAS [Suspect]
     Active Substance: RIOCIGUAT
     Indication: Pulmonary arterial hypertension
     Dosage: 2 MG, TID
     Route: 048
     Dates: end: 2022
  4. OPSUMIT [Concomitant]
     Active Substance: MACITENTAN
     Dosage: UNK

REACTIONS (16)
  - Right ventricular failure [None]
  - Pericardial effusion [None]
  - Oedema peripheral [None]
  - Fluid retention [None]
  - Hypotension [None]
  - Dyspnoea [None]
  - Syncope [None]
  - Syncope [Not Recovered/Not Resolved]
  - Chronic kidney disease [None]
  - Dizziness [Not Recovered/Not Resolved]
  - Fall [None]
  - Back pain [None]
  - Vomiting [None]
  - Peripheral swelling [None]
  - Weight decreased [None]
  - Pain [None]

NARRATIVE: CASE EVENT DATE: 20220201
